FAERS Safety Report 7379734-5 (Version None)
Quarter: 2011Q1

REPORT INFORMATION
  Report Type: 
  Country: None (occurrence: None)
  Receive Date: 20110329
  Receipt Date: 20110324
  Transmission Date: 20110831
  Serious: Yes (Other)
  Sender: FDA-Public Use
  Company Number: US-PFIZER INC-2011014291

PATIENT
  Sex: Female

DRUGS (3)
  1. PERCOCET [Concomitant]
     Indication: PAIN
     Dosage: UNK
     Dates: end: 20101001
  2. CHANTIX [Suspect]
     Indication: SMOKING CESSATION THERAPY
     Dosage: 0.5 MG AND 1 MG
     Dates: start: 20090201, end: 20090701
  3. VALIUM [Concomitant]
     Indication: STRESS
     Dosage: UNK

REACTIONS (5)
  - SUICIDAL IDEATION [None]
  - MENTAL DISORDER [None]
  - ANXIETY [None]
  - DEPRESSION [None]
  - MARITAL PROBLEM [None]
